FAERS Safety Report 12821702 (Version 1)
Quarter: 2016Q4

REPORT INFORMATION
  Report Type: Report from Study
  Country: US (occurrence: US)
  Receive Date: 20161006
  Receipt Date: 20161006
  Transmission Date: 20170207
  Serious: No
  Sender: FDA-Public Use
  Company Number: US-AMGEN-USASL2016031157

PATIENT
  Age: 71 Year
  Sex: Female
  Weight: 64.4 kg

DRUGS (4)
  1. CALCIUM [Concomitant]
     Active Substance: CALCIUM
  2. PROLIA [Suspect]
     Active Substance: DENOSUMAB
     Indication: OSTEOPOROSIS
     Dosage: UNK
     Route: 065
  3. VITAMIN D                          /00107901/ [Concomitant]
     Active Substance: ERGOCALCIFEROL
     Dosage: 5000 UNIT, QD
  4. BENADRYL [Suspect]
     Active Substance: DIPHENHYDRAMINE HYDROCHLORIDE
     Indication: PRURITUS
     Route: 065

REACTIONS (6)
  - Gastritis [Recovering/Resolving]
  - Abdominal tenderness [Unknown]
  - Irritable bowel syndrome [Recovering/Resolving]
  - Pruritus generalised [Unknown]
  - Fatigue [Unknown]
  - Musculoskeletal pain [Unknown]
